FAERS Safety Report 13005614 (Version 1)
Quarter: 2016Q4

REPORT INFORMATION
  Report Type: Spontaneous
  Country: US (occurrence: US)
  Receive Date: 20161207
  Receipt Date: 20161207
  Transmission Date: 20170207
  Serious: No
  Sender: FDA-Public Use
  Company Number: US-JNJFOC-20161117334

PATIENT
  Sex: Male
  Weight: 86.18 kg

DRUGS (7)
  1. REMICADE [Suspect]
     Active Substance: INFLIXIMAB
     Indication: CROHN^S DISEASE
     Dosage: DISCONTINUED IN SEP-2016 OR OCT-2016.
     Route: 042
     Dates: start: 201603, end: 2016
  2. REMICADE [Suspect]
     Active Substance: INFLIXIMAB
     Indication: CROHN^S DISEASE
     Dosage: EITHER AUG-2015 OR SEP-2015
     Route: 042
     Dates: start: 2015, end: 2016
  3. BENADRYL [Concomitant]
     Active Substance: DIPHENHYDRAMINE HYDROCHLORIDE
     Indication: PREMEDICATION
     Route: 042
  4. TYLENOL [Concomitant]
     Active Substance: ACETAMINOPHEN
     Indication: PREMEDICATION
     Route: 065
  5. REMICADE [Suspect]
     Active Substance: INFLIXIMAB
     Indication: CROHN^S DISEASE
     Dosage: EITHER AUG-2015 OR SEP-2015
     Route: 042
     Dates: start: 2016, end: 201603
  6. REMICADE [Suspect]
     Active Substance: INFLIXIMAB
     Indication: CROHN^S DISEASE
     Dosage: EITHER AUG-2015 OR SEP-2015
     Route: 042
     Dates: start: 2016, end: 2016
  7. 6-MP [Concomitant]
     Active Substance: MERCAPTOPURINE
     Indication: CROHN^S DISEASE
     Route: 065

REACTIONS (6)
  - Off label use [Unknown]
  - Crohn^s disease [Not Recovered/Not Resolved]
  - Weight fluctuation [Unknown]
  - Drug specific antibody present [Unknown]
  - Product use issue [Unknown]
  - Pain [Recovered/Resolved]

NARRATIVE: CASE EVENT DATE: 2015
